FAERS Safety Report 8786171 (Version 1)
Quarter: 2012Q4

REPORT INFORMATION
  Report Type: Report from Study
  Country: US (occurrence: US)
  Receive Date: 20120914
  Receipt Date: 20120914
  Transmission Date: 20130627
  Serious: Yes (Other)
  Sender: FDA-Public Use
  Company Number: US-VERTEX PHARMACEUTICAL INC.-2012-021192

PATIENT
  Age: 51 Year
  Sex: Female

DRUGS (2)
  1. INCIVEK [Suspect]
     Indication: HEPATITIS C
     Dosage: 2 DF, tid
     Route: 048
     Dates: start: 20110801
  2. COPEGUS [Concomitant]
     Indication: HEPATITIS C
     Dosage: Dosage Form: Tablets
     Route: 048
     Dates: start: 20110801

REACTIONS (1)
  - Transfusion [Unknown]
